FAERS Safety Report 13726552 (Version 1)
Quarter: 2017Q3

REPORT INFORMATION
  Report Type: Spontaneous
  Country: CN (occurrence: CN)
  Receive Date: 20170707
  Receipt Date: 20170707
  Transmission Date: 20171127
  Serious: Yes (Other)
  Sender: FDA-Public Use
  Company Number: CN-ASTRAZENECA-2017SE64437

PATIENT
  Age: 60 Year
  Sex: Female

DRUGS (2)
  1. FASLODEX [Suspect]
     Active Substance: FULVESTRANT
     Route: 030
  2. TAMOXIFEN [Suspect]
     Active Substance: TAMOXIFEN
     Dosage: IT WAS UNKNOWN WHETHER IT WAS AZ PRODUCT OR NOT.
     Route: 048
     Dates: start: 2012

REACTIONS (4)
  - Hypoxia [Unknown]
  - Malignant neoplasm progression [Unknown]
  - Pulmonary fibrosis [Unknown]
  - Dyspnoea [Unknown]
